FAERS Safety Report 26073904 (Version 1)
Quarter: 2025Q4

REPORT INFORMATION
  Report Type: Spontaneous
  Country: US (occurrence: US)
  Receive Date: 20251121
  Receipt Date: 20251121
  Transmission Date: 20260118
  Serious: No
  Sender: RECKITT BENCKISER
  Company Number: US-PROD-AS2-212756134-20-25-USA-RB-0013935

PATIENT
  Age: 65 Year
  Sex: Female

DRUGS (2)
  1. DELSYM [Suspect]
     Active Substance: DEXTROMETHORPHAN
     Indication: Cough
     Dosage: 40ML, BID
     Route: 048
     Dates: start: 20250629, end: 20250629
  2. DELSYM [Suspect]
     Active Substance: DEXTROMETHORPHAN
     Dosage: 40ML, BID
     Route: 048
     Dates: start: 20250703, end: 20250703

REACTIONS (2)
  - Somnolence [Recovered/Resolved]
  - Overdose [Recovered/Resolved]

NARRATIVE: CASE EVENT DATE: 20250629
